FAERS Safety Report 21420204 (Version 1)
Quarter: 2022Q4

REPORT INFORMATION
  Report Type: Spontaneous
  Country: US (occurrence: US)
  Receive Date: 20221007
  Receipt Date: 20221007
  Transmission Date: 20230112
  Serious: Yes (Other)
  Sender: FDA-Public Use
  Company Number: US-SUN PHARMACEUTICAL INDUSTRIES LTD-2022R1-339960

PATIENT
  Sex: Female

DRUGS (1)
  1. ILUMYA [Suspect]
     Active Substance: TILDRAKIZUMAB-ASMN
     Indication: Psoriasis
     Dosage: 100 MG/ML
     Route: 058

REACTIONS (6)
  - Sinusitis [Unknown]
  - Bacterial infection [Unknown]
  - Product dose omission issue [Unknown]
  - Therapy partial responder [Recovering/Resolving]
  - COVID-19 [Not Recovered/Not Resolved]
  - Drug ineffective [Unknown]
